FAERS Safety Report 6832809-9 (Version None)
Quarter: 2010Q3

REPORT INFORMATION
  Report Type: 
  Country: None (occurrence: None)
  Receive Date: 20100712
  Receipt Date: 20070321
  Transmission Date: 20110219
  Serious: No
  Sender: FDA-Public Use
  Company Number: US-PFIZER INC-2007024272

PATIENT
  Sex: Male
  Weight: 74.84 kg

DRUGS (9)
  1. CHANTIX [Suspect]
     Indication: SMOKING CESSATION THERAPY
     Dates: start: 20070301
  2. BENICAR [Concomitant]
  3. TAMSULOSIN HYDROCHLORIDE [Concomitant]
  4. ACIPHEX [Concomitant]
     Indication: GASTROOESOPHAGEAL REFLUX DISEASE
  5. ALLEGRA [Concomitant]
  6. MELOXICAM [Concomitant]
     Indication: TENDONITIS
  7. MULTI-VITAMINS [Concomitant]
  8. GINSENG [Concomitant]
  9. GINKGO BILOBA [Concomitant]

REACTIONS (2)
  - ABNORMAL DREAMS [None]
  - NAUSEA [None]
